FAERS Safety Report 12969388 (Version 1)
Quarter: 2016Q4

REPORT INFORMATION
  Report Type: Spontaneous
  Country: JP (occurrence: JP)
  Receive Date: 20161123
  Receipt Date: 20161123
  Transmission Date: 20170207
  Serious: Yes (Hospitalization)
  Sender: FDA-Public Use
  Company Number: JP-PFIZER INC-2016538857

PATIENT

DRUGS (1)
  1. CABASER 0.25MG [Suspect]
     Active Substance: CABERGOLINE
     Dosage: UNK

REACTIONS (3)
  - Asthma [Unknown]
  - Drug administration error [Unknown]
  - Incorrect product storage [Unknown]
